FAERS Safety Report 6006164-0 (Version None)
Quarter: 2008Q4

REPORT INFORMATION
  Report Type: 
  Country: None (occurrence: None)
  Receive Date: 20081217
  Receipt Date: 20080812
  Transmission Date: 20090506
  Serious: No
  Sender: FDA-Public Use
  Company Number: US-AMGEN-KDL300607

PATIENT
  Sex: Female

DRUGS (5)
  1. ENBREL [Suspect]
     Indication: RHEUMATOID ARTHRITIS
     Route: 058
     Dates: start: 20080804
  2. METHOTREXATE [Concomitant]
     Route: 048
     Dates: start: 20060101
  3. PREVACID [Concomitant]
  4. FOLIC ACID [Concomitant]
  5. VITAMIN D3 [Concomitant]

REACTIONS (2)
  - LYMPHADENOPATHY [None]
  - UPPER RESPIRATORY TRACT INFECTION [None]
